FAERS Safety Report 5528848-0 (Version None)
Quarter: 2007Q4

REPORT INFORMATION
  Report Type: 
  Country: None (occurrence: None)
  Receive Date: 20071113
  Receipt Date: 20070820
  Transmission Date: 20080405
  Serious: No
  Sender: FDA-Public Use
  Company Number: 200716056US

PATIENT
  Age: 36 Year
  Sex: Female

DRUGS (16)
  1. APIDRA [Suspect]
     Indication: TYPE 1 DIABETES MELLITUS
     Dates: start: 20070801
  2. TEGRETOL [Concomitant]
  3. FUROSEMIDEE (LASIX /00032601/) [Concomitant]
  4. ALLOPURINOL [Concomitant]
  5. COUMADIN [Concomitant]
  6. ENALAPRILAT (VASOTEC /00935901/) [Concomitant]
  7. CLOPIDOGREL (PLAVIX /01220701/) [Concomitant]
  8. CITALOPRAM HYDROBROMIDE (CELEXA /00582602/) [Concomitant]
  9. SYNTHROID [Concomitant]
  10. BACLOFEN [Concomitant]
  11. ZOCOR [Concomitant]
  12. OXYCODONE HYDROCHLORIDE (OXYCONTIN) [Concomitant]
  13. XANAX [Concomitant]
  14. PARACETAMOL, HYDROCODONE BITARTRATE (LORCET /00607101/) [Concomitant]
  15. ERGOCALCIFEROL, RETINOL, CALCIUM CARBONATE (CALCITROL) [Concomitant]
  16. DIPHENHYDRAMINE HYDROCHLORIDE (BENADRYL /00000402/) [Concomitant]

REACTIONS (1)
  - WEIGHT INCREASED [None]
